FAERS Safety Report 7583025-7 (Version None)
Quarter: 2011Q2

REPORT INFORMATION
  Report Type: 
  Country: None (occurrence: None)
  Receive Date: 20110627
  Receipt Date: 20110627
  Transmission Date: 20111010
  Serious: Yes (Other)
  Sender: FDA-Public Use
  Company Number: None

PATIENT
  Age: 53 Year
  Sex: Female
  Weight: 61.281 kg

DRUGS (13)
  1. PREDNISONE [Concomitant]
  2. COLCHICINE [Concomitant]
  3. TYLENOL W/ CODEINE NO. 3 [Concomitant]
  4. DEXAMETHASONE [Concomitant]
  5. ETHACRYNIC ACID [Concomitant]
  6. CHEMO MEDS: REVLIMID [Concomitant]
  7. OMEPRAZOLE [Concomitant]
  8. PROCRIT [Concomitant]
  9. CYCLOSPORINE [Suspect]
     Indication: RENAL TRANSPLANT
     Dosage: 25 MG DAILY PO
     Route: 048
     Dates: start: 20100505, end: 20110624
  10. REVLIMID [Concomitant]
  11. SIMVASTATIN [Concomitant]
  12. PARICALCITOL [Concomitant]
  13. VERPAMIL HCL [Concomitant]

REACTIONS (1)
  - BONE MARROW FAILURE [None]
